FAERS Safety Report 16544260 (Version 2)
Quarter: 2019Q3

REPORT INFORMATION
  Report Type: Spontaneous
  Country: US (occurrence: US)
  Receive Date: 20190709
  Receipt Date: 20190712
  Transmission Date: 20191004
  Serious: Yes (Other)
  Sender: FDA-Public Use
  Company Number: US-PFIZER INC-2015096168

PATIENT
  Age: 57 Year
  Sex: Male

DRUGS (12)
  1. VALIUM [Concomitant]
     Active Substance: DIAZEPAM
     Dosage: 10 MG, AS NEEDED [TAKE 10 MG BY MOUTH EVERY 8 (EIGHT) HOURS]
     Route: 048
  2. CYMBALTA [Concomitant]
     Active Substance: DULOXETINE HYDROCHLORIDE
     Dosage: 60 MG, 2X/DAY
     Route: 048
  3. FLONASE [Concomitant]
     Active Substance: FLUTICASONE PROPIONATE
     Dosage: UNK, DAILY [50 MCG/ACTUATION NASAL SPRAY: 2 SPRAYS]
     Route: 045
  4. BACTRIM DS [Concomitant]
     Active Substance: SULFAMETHOXAZOLE\TRIMETHOPRIM
     Indication: CONDITION AGGRAVATED
     Dosage: UNK, 1X/DAY [800-160 MG PER TABLET: TAKE 1 TABLET BY MOUTH ONCE DAILY]
     Route: 048
  5. VIAGRA [Suspect]
     Active Substance: SILDENAFIL CITRATE
     Indication: ERECTILE DYSFUNCTION
     Dosage: 100 MG, AS NEEDED
     Route: 048
  6. BENZOYL PEROXIDE. [Concomitant]
     Active Substance: BENZOYL PEROXIDE
     Dosage: UNK, DAILY [10% LIQD: APPLY 1 APPLICATION TOPICALLY DAILY]
     Route: 061
  7. CYMBALTA [Concomitant]
     Active Substance: DULOXETINE HYDROCHLORIDE
     Dosage: 30 MG, DAILY
     Route: 048
  8. FOLIC ACID. [Concomitant]
     Active Substance: FOLIC ACID
     Dosage: 1 MG, DAILY
     Route: 048
  9. DELTASONE [Concomitant]
     Active Substance: PREDNISONE
     Dosage: 5 MG, AS NEEDED [TAKE 1 TABLET BY MOUTH]
     Route: 048
  10. PRILOSEC [Concomitant]
     Active Substance: OMEPRAZOLE MAGNESIUM
     Dosage: 40 MG, DAILY
     Route: 048
  11. HUMIRA [Concomitant]
     Active Substance: ADALIMUMAB
     Dosage: UNK [INJECT INTO THE SKIN]
     Route: 058
  12. METHOTREXATE. [Concomitant]
     Active Substance: METHOTREXATE
     Dosage: 20 MG, WEEKLY [AKE 8 TABLET BY MOUTH EVERY WEEK]
     Route: 048

REACTIONS (2)
  - Back pain [Unknown]
  - Arthritis [Unknown]
